FAERS Safety Report 6930232-X (Version None)
Quarter: 2010Q3

REPORT INFORMATION
  Report Type: 
  Country: None (occurrence: None)
  Receive Date: 20100817
  Receipt Date: 20100817
  Transmission Date: 20110219
  Serious: No
  Sender: FDA-Public Use
  Company Number: None

PATIENT
  Sex: Female
  Weight: 81.6475 kg

DRUGS (1)
  1. ADVAIR DISKUS 100/50 [Suspect]
     Indication: DYSPNOEA
     Dosage: 2 X A DAY 1AM +1PM 250/ DOWN TO 100/50

REACTIONS (6)
  - ASTHENIA [None]
  - DEHYDRATION [None]
  - GASTROINTESTINAL INFLAMMATION [None]
  - INCORRECT ROUTE OF DRUG ADMINISTRATION [None]
  - RETCHING [None]
  - VOMITING [None]
